FAERS Safety Report 8145907-7 (Version None)
Quarter: 2012Q1

REPORT INFORMATION
  Report Type: 
  Country: None (occurrence: None)
  Receive Date: 20120217
  Receipt Date: 20110625
  Transmission Date: 20120608
  Serious: No
  Sender: FDA-Public Use
  Company Number: US-ABBOTT-11P-163-0834341-00

PATIENT
  Sex: Female
  Weight: 83.99 kg

DRUGS (3)
  1. TOPROL-XL [Concomitant]
     Indication: PRODUCT USED FOR UNKNOWN INDICATION
  2. SIMVASTATIN [Concomitant]
     Indication: PRODUCT USED FOR UNKNOWN INDICATION
  3. SIMCOR [Suspect]
     Indication: BLOOD CHOLESTEROL INCREASED
     Dosage: 500/40 MG AT BEDTIME
     Dates: start: 20110601

REACTIONS (5)
  - FLUSHING [None]
  - SKIN BURNING SENSATION [None]
  - LIP SWELLING [None]
  - PARAESTHESIA ORAL [None]
  - GENERALISED ERYTHEMA [None]
